FAERS Safety Report 19244203 (Version 2)
Quarter: 2023Q2

REPORT INFORMATION
  Report Type: Report from Study
  Country: GB (occurrence: GB)
  Receive Date: 20210512
  Receipt Date: 20230612
  Transmission Date: 20230721
  Serious: Yes (Other)
  Sender: FDA-Public Use
  Company Number: GB-EMA-DD-20181109-SAHU_K-161424

PATIENT
  Age: 6 Year
  Sex: Male

DRUGS (9)
  1. MELPHALAN [Suspect]
     Active Substance: MELPHALAN
     Indication: Bone marrow conditioning regimen
     Dosage: 140 MG/M2, DAY 3
     Route: 065
  2. ALEMTUZUMAB [Suspect]
     Active Substance: ALEMTUZUMAB
     Indication: Bone marrow conditioning regimen
     Dosage: 0.2 MG/KG, QD, DAYS 8-4
     Route: 065
  3. ANAKINRA [Suspect]
     Active Substance: ANAKINRA
     Indication: Juvenile idiopathic arthritis
     Dosage: UNK
     Route: 065
  4. ANAKINRA [Suspect]
     Active Substance: ANAKINRA
     Indication: Haemophagocytic lymphohistiocytosis
  5. FLUDARABINE PHOSPHATE [Suspect]
     Active Substance: FLUDARABINE PHOSPHATE
     Indication: Bone marrow conditioning regimen
     Dosage: 30 MG/M2, QD, DAYS 8 TO 4
     Route: 065
  6. METHOTREXATE [Suspect]
     Active Substance: METHOTREXATE
     Indication: Juvenile idiopathic arthritis
     Dosage: UNK
     Route: 065
  7. METHOTREXATE [Suspect]
     Active Substance: METHOTREXATE
     Indication: Haemophagocytic lymphohistiocytosis
  8. TOCILIZUMAB [Suspect]
     Active Substance: TOCILIZUMAB
     Indication: Haemophagocytic lymphohistiocytosis
     Dosage: UNK
     Route: 065
  9. TOCILIZUMAB [Suspect]
     Active Substance: TOCILIZUMAB
     Indication: Juvenile idiopathic arthritis

REACTIONS (9)
  - Cytomegalovirus viraemia [Unknown]
  - Graft versus host disease in gastrointestinal tract [Unknown]
  - Haemophagocytic lymphohistiocytosis [Unknown]
  - Lower respiratory tract infection [Unknown]
  - Pleural effusion [Unknown]
  - Epstein-Barr viraemia [Unknown]
  - Pyrexia [Unknown]
  - Off label use [Unknown]
  - Drug ineffective [Unknown]
